FAERS Safety Report 15312652 (Version 2)
Quarter: 2018Q3

REPORT INFORMATION
  Report Type: Spontaneous
  Country: US (occurrence: US)
  Receive Date: 20180823
  Receipt Date: 20180917
  Transmission Date: 20181010
  Serious: No
  Sender: FDA-Public Use
  Company Number: US-BAYER-2018-155057

PATIENT
  Sex: Female

DRUGS (1)
  1. MIRENA [Suspect]
     Active Substance: LEVONORGESTREL
     Indication: CONTRACEPTION
     Dosage: 20 MCG/24HR, CONT
     Route: 015
     Dates: start: 20180713, end: 201809

REACTIONS (5)
  - Abdominal pain lower [None]
  - Acne [Recovered/Resolved]
  - Headache [None]
  - Alopecia [None]
  - Dyspareunia [None]

NARRATIVE: CASE EVENT DATE: 2018
